FAERS Safety Report 6640655-4 (Version None)
Quarter: 2010Q1

REPORT INFORMATION
  Report Type: 
  Country: None (occurrence: None)
  Receive Date: 20100318
  Receipt Date: 20100222
  Transmission Date: 20100710
  Serious: Yes (Hospitalization)
  Sender: FDA-Public Use
  Company Number: AU-GENENTECH-296600

PATIENT
  Sex: Male
  Weight: 110 kg

DRUGS (27)
  1. RITUXIMAB [Suspect]
     Indication: DIFFUSE LARGE B-CELL LYMPHOMA
     Dosage: 750 MG, Q21D
     Route: 042
     Dates: start: 20091202
  2. BLINDED BEVACIZUMAB [Suspect]
     Dosage: UNK, Q21D
     Route: 042
     Dates: start: 20091201
  3. CYCLOPHOSPHAMIDE [Suspect]
     Dosage: UNK, Q21D
     Route: 042
     Dates: start: 20091201
  4. DOXORUBICIN HCL [Suspect]
     Dosage: UNK, Q21D
     Route: 042
     Dates: start: 20091201
  5. BLINDED PLACEBO [Suspect]
     Dosage: UNK, Q21D
     Route: 042
     Dates: start: 20091201
  6. BLINDED PREDNISONE [Suspect]
     Dosage: UNK, Q21D
     Route: 042
     Dates: start: 20091201
  7. BLINDED RITUXIMAB [Suspect]
     Dosage: UNK, Q21D
     Route: 042
     Dates: start: 20091201
  8. VINCRISTINE [Suspect]
     Dosage: UNK, Q21D
     Route: 042
     Dates: start: 20091201
  9. DOXORUBICIN [Suspect]
     Indication: DIFFUSE LARGE B-CELL LYMPHOMA
     Dosage: 100 MG, Q21D
     Route: 042
     Dates: start: 20091202, end: 20100113
  10. DOXORUBICIN [Suspect]
     Dosage: 75 MG, 1/WEEK
     Route: 042
     Dates: start: 20100113
  11. VINCRISTINE [Suspect]
     Indication: DIFFUSE LARGE B-CELL LYMPHOMA
     Dosage: 2 MG, Q21D
     Route: 042
     Dates: start: 20091202
  12. CYCLOPHOSPHAMIDE [Suspect]
     Indication: DIFFUSE LARGE B-CELL LYMPHOMA
     Dosage: 1500 MG, Q21D
     Route: 042
     Dates: start: 20091202, end: 20100113
  13. CYCLOPHOSPHAMIDE [Suspect]
     Dosage: 1125 MG, Q3W
     Route: 042
     Dates: start: 20100113
  14. PREDNISOLONE [Suspect]
     Indication: DIFFUSE LARGE B-CELL LYMPHOMA
     Dosage: 100 MG, Q21D
     Route: 048
     Dates: start: 20091202
  15. ISOSORBIDE MONONITRATE [Concomitant]
     Indication: DRUG USE FOR UNKNOWN INDICATION
     Dosage: UNK
  16. MICARDIS HCT [Concomitant]
     Indication: DRUG USE FOR UNKNOWN INDICATION
     Dosage: UNK
  17. ASPIRIN [Concomitant]
     Indication: DRUG USE FOR UNKNOWN INDICATION
     Dosage: UNK
  18. ESOMEPRAZOLE [Concomitant]
     Indication: DRUG USE FOR UNKNOWN INDICATION
     Dosage: UNK
  19. AMLODIPINE [Concomitant]
     Indication: DRUG USE FOR UNKNOWN INDICATION
     Dosage: UNK
  20. METHYLDOPA [Concomitant]
     Indication: DRUG USE FOR UNKNOWN INDICATION
     Dosage: UNK
  21. METOPROLOL TARTRATE [Concomitant]
     Indication: DRUG USE FOR UNKNOWN INDICATION
     Dosage: UNK
  22. INSULIN NOVO RAPITARD [Concomitant]
     Indication: DRUG USE FOR UNKNOWN INDICATION
     Dosage: 16 UNIT, UNK
  23. ISOPHANE INSULIN [Concomitant]
     Indication: DRUG USE FOR UNKNOWN INDICATION
     Dosage: 34 UNIT, UNK
  24. XALATAN [Concomitant]
     Indication: DRUG USE FOR UNKNOWN INDICATION
     Dosage: UNK
  25. SERETIDE [Concomitant]
     Indication: DRUG USE FOR UNKNOWN INDICATION
  26. VYTORIN [Concomitant]
     Indication: DRUG USE FOR UNKNOWN INDICATION
  27. ALLOPURINOL [Concomitant]
     Indication: DRUG USE FOR UNKNOWN INDICATION
     Dosage: UNK
     Dates: start: 20091130

REACTIONS (2)
  - DEHYDRATION [None]
  - NEUTROPENIA [None]
